FAERS Safety Report 11278863 (Version 5)
Quarter: 2016Q2

REPORT INFORMATION
  Report Type: Report from Study
  Country: US (occurrence: US)
  Receive Date: 20150717
  Receipt Date: 20160505
  Transmission Date: 20160815
  Serious: Yes (Hospitalization, Other)
  Sender: FDA-Public Use
  Company Number: US-ROCHE-1606926

PATIENT
  Age: 57 Year
  Sex: Female
  Weight: 68.1 kg

DRUGS (16)
  1. HERCEPTIN [Suspect]
     Active Substance: TRASTUZUMAB
     Route: 042
     Dates: start: 20140109
  2. HERCEPTIN [Suspect]
     Active Substance: TRASTUZUMAB
     Route: 042
     Dates: start: 20140709, end: 20150624
  3. CYMBALTA [Concomitant]
     Active Substance: DULOXETINE HYDROCHLORIDE
     Indication: DEPRESSION
  4. ASPIRIN. [Concomitant]
     Active Substance: ASPIRIN
     Dosage: FOR HEART SINCE TRASTUZUMAB
     Route: 065
  5. PROLIA [Concomitant]
     Active Substance: DENOSUMAB
     Dosage: FOR BONES
     Route: 065
  6. CARBOPLATIN. [Concomitant]
     Active Substance: CARBOPLATIN
     Indication: BREAST CANCER
     Route: 042
  7. LEVOTHYROXINE. [Concomitant]
     Active Substance: LEVOTHYROXINE
     Dosage: STARTED 8 MONTHS AGO
     Route: 065
  8. ZOFRAN [Suspect]
     Active Substance: ONDANSETRON HYDROCHLORIDE
     Indication: VOMITING
     Route: 065
  9. SEROTONIN [Suspect]
     Active Substance: SEROTONIN
     Indication: NAUSEA
     Route: 065
  10. XANAX [Concomitant]
     Active Substance: ALPRAZOLAM
     Dosage: 1 TABLET EVERY 4-6 HOURS
     Route: 065
  11. CYMBALTA [Concomitant]
     Active Substance: DULOXETINE HYDROCHLORIDE
     Indication: PAIN
     Route: 048
     Dates: start: 201406
  12. TRINTELLIX [Concomitant]
     Active Substance: VORTIOXETINE HYDROBROMIDE
     Indication: DEPRESSION
     Route: 065
     Dates: start: 201512
  13. TAXOTERE [Concomitant]
     Active Substance: DOCETAXEL
     Indication: BREAST CANCER
     Route: 042
  14. HERCEPTIN [Suspect]
     Active Substance: TRASTUZUMAB
     Indication: INVASIVE DUCTAL BREAST CARCINOMA
     Route: 042
     Dates: start: 201301
  15. ANASTROZOLE. [Concomitant]
     Active Substance: ANASTROZOLE
     Route: 048
     Dates: start: 201409
  16. FLEXERIL [Concomitant]
     Active Substance: CYCLOBENZAPRINE HYDROCHLORIDE
     Indication: MUSCLE SPASMS

REACTIONS (39)
  - Malaise [Unknown]
  - Dizziness [Recovering/Resolving]
  - Peripheral swelling [Unknown]
  - Abnormal dreams [Unknown]
  - Red blood cell count decreased [Unknown]
  - Glomerular filtration rate decreased [Unknown]
  - Nausea [Recovering/Resolving]
  - Ill-defined disorder [Recovered/Resolved]
  - Cough [Unknown]
  - Weight increased [Unknown]
  - Alopecia [Unknown]
  - Platelet count decreased [Unknown]
  - Pruritus [Not Recovered/Not Resolved]
  - Neoplasm malignant [Unknown]
  - Ejection fraction decreased [Unknown]
  - Neutropenia [Unknown]
  - Diarrhoea [Not Recovered/Not Resolved]
  - Nipple pain [Not Recovered/Not Resolved]
  - Aneurysm [Not Recovered/Not Resolved]
  - Dehydration [Recovered/Resolved]
  - Anaemia [Unknown]
  - Cognitive disorder [Unknown]
  - White blood cell count decreased [Unknown]
  - Tumour marker increased [Unknown]
  - Depression [Unknown]
  - Rash [Unknown]
  - Myalgia [Unknown]
  - Influenza like illness [Not Recovered/Not Resolved]
  - Pain [Recovering/Resolving]
  - Pulmonary thrombosis [Unknown]
  - Cardiac failure [Unknown]
  - Muscle spasms [Not Recovered/Not Resolved]
  - Laceration [Recovered/Resolved]
  - Fatigue [Unknown]
  - Fluid retention [Unknown]
  - Breast pain [Unknown]
  - Pain in jaw [Unknown]
  - Neuropathy peripheral [Not Recovered/Not Resolved]
  - Crying [Unknown]

NARRATIVE: CASE EVENT DATE: 201401
